FAERS Safety Report 6344459-1 (Version None)
Quarter: 2009Q3

REPORT INFORMATION
  Report Type: 
  Country: None (occurrence: None)
  Receive Date: 20090903
  Receipt Date: 20090826
  Transmission Date: 20100115
  Serious: Yes (Life-Threatening, Hospitalization)
  Sender: FDA-Public Use
  Company Number: 237147K09USA

PATIENT
  Age: 31 Year
  Sex: Male
  Weight: 56 kg

DRUGS (1)
  1. REBIF [Suspect]
     Indication: MULTIPLE SCLEROSIS
     Dosage: 44 MCG, 3 IN 1 WEEKS, SUBCUTANEOUS
     Route: 058
     Dates: start: 20090709, end: 20090101

REACTIONS (5)
  - DYSPNOEA [None]
  - FALL [None]
  - MALAISE [None]
  - MIDDLE INSOMNIA [None]
  - VIRAL INFECTION [None]
